FAERS Safety Report 7670946-X (Version None)
Quarter: 2011Q3

REPORT INFORMATION
  Report Type: 
  Country: None (occurrence: None)
  Receive Date: 20110809
  Receipt Date: 20110805
  Transmission Date: 20111222
  Serious: Yes (Other)
  Sender: FDA-Public Use
  Company Number: US-PFIZER INC-2011099085

PATIENT
  Sex: Female

DRUGS (2)
  1. CHANTIX [Suspect]
     Indication: SMOKING CESSATION THERAPY
     Dosage: STARTER PACK 0.5MG
     Dates: start: 20080605, end: 20080615
  2. CHANTIX [Suspect]
     Dosage: STARTER PACK 0.5MG
     Dates: start: 20090301, end: 20090401

REACTIONS (2)
  - ANXIETY [None]
  - DEPRESSION [None]
